FAERS Safety Report 6271980-7 (Version None)
Quarter: 2009Q3

REPORT INFORMATION
  Report Type: 
  Country: None (occurrence: None)
  Receive Date: 20090713
  Receipt Date: 20090410
  Transmission Date: 20100115
  Serious: No
  Sender: FDA-Public Use
  Company Number: 2009BM000092

PATIENT
  Age: 22 Year
  Sex: Male
  Weight: 112.9457 kg

DRUGS (1)
  1. KUVAN [Suspect]
     Indication: PHENYLKETONURIA
     Dosage: 1100 MG; QD;
     Dates: start: 20081201

REACTIONS (7)
  - COUGH [None]
  - FAMILY STRESS [None]
  - NASAL CONGESTION [None]
  - NASOPHARYNGITIS [None]
  - OROPHARYNGEAL PAIN [None]
  - PYREXIA [None]
  - TREATMENT NONCOMPLIANCE [None]
